FAERS Safety Report 6998214-X (Version None)
Quarter: 2010Q3

REPORT INFORMATION
  Report Type: 
  Country: None (occurrence: None)
  Receive Date: 20100920
  Receipt Date: 20100908
  Transmission Date: 20110219
  Serious: Yes (Hospitalization)
  Sender: FDA-Public Use
  Company Number: FR-JNJFOC-20100905128

PATIENT
  Sex: Female

DRUGS (4)
  1. IXPRIM [Suspect]
     Indication: OSTEOARTHRITIS
     Dosage: 1 TO 4 TABLETS DAILY, AS NEEDED
     Route: 048
  2. KETUM [Suspect]
     Indication: OSTEOARTHRITIS
     Route: 003
  3. SIMVASTATIN [Concomitant]
  4. TAREG [Concomitant]

REACTIONS (4)
  - APPLICATION SITE RASH [None]
  - ERYTHEMA MULTIFORME [None]
  - ORAL DISORDER [None]
  - PYREXIA [None]
